FAERS Safety Report 17007441 (Version 1)
Quarter: 2019Q4

REPORT INFORMATION
  Report Type: Spontaneous
  Country: FR (occurrence: FR)
  Receive Date: 20191108
  Receipt Date: 20191108
  Transmission Date: 20200122
  Serious: Yes (Death)
  Sender: FDA-Public Use
  Company Number: FR-SUN PHARMACEUTICAL INDUSTRIES LTD-2019RR-226671

PATIENT
  Age: 78 Year
  Sex: Male
  Weight: 46 kg

DRUGS (3)
  1. PANTOPRAZOL [Suspect]
     Active Substance: PANTOPRAZOLE SODIUM
     Indication: GASTROOESOPHAGEAL REFLUX DISEASE
     Dosage: 40 MILLIGRAM, DAILY
     Route: 048
     Dates: start: 2019
  2. RIFATER [Suspect]
     Active Substance: ISONIAZID\PYRAZINAMIDE\RIFAMPIN
     Indication: PULMONARY TUBERCULOSIS
     Dosage: 1 DOSAGE FORM, DAILY
     Route: 048
     Dates: start: 20190621, end: 20190907
  3. DEXAMBUTOL [Suspect]
     Active Substance: ETHAMBUTOL HYDROCHLORIDE
     Indication: PULMONARY TUBERCULOSIS
     Dosage: 1 DOSAGE FORM, DAILY
     Route: 048
     Dates: start: 20190621, end: 20190907

REACTIONS (4)
  - Drug reaction with eosinophilia and systemic symptoms [Fatal]
  - Cell death [Fatal]
  - Rash [Fatal]
  - Cholestasis [Fatal]

NARRATIVE: CASE EVENT DATE: 20190906
